FAERS Safety Report 6174061-6 (Version None)
Quarter: 2009Q2

REPORT INFORMATION
  Report Type: 
  Country: None (occurrence: None)
  Receive Date: 20090430
  Receipt Date: 20080306
  Transmission Date: 20091009
  Serious: No
  Sender: FDA-Public Use
  Company Number: US-ASTRAZENECA-2008UW04729

PATIENT
  Age: 65 Year
  Sex: Female

DRUGS (4)
  1. NEXIUM [Suspect]
     Indication: GASTROOESOPHAGEAL REFLUX DISEASE
     Route: 048
     Dates: start: 20060101
  2. RANITIDINE [Concomitant]
  3. SYNTHROID [Concomitant]
  4. HORMONE PATCH [Concomitant]

REACTIONS (3)
  - ALOPECIA [None]
  - EATING DISORDER [None]
  - WEIGHT DECREASED [None]
